FAERS Safety Report 11199734 (Version 1)
Quarter: 2015Q2

REPORT INFORMATION
  Report Type: Spontaneous
  Country: US (occurrence: None)
  Receive Date: 20150616
  Receipt Date: 20150616
  Transmission Date: 20150821
  Serious: Yes (Disabling)
  Sender: FDA-Public Use
  Company Number: None

PATIENT
  Age: 65 Year
  Sex: Female
  Weight: 77.11 kg

DRUGS (9)
  1. ZOLPIDEM TARTRATE. [Concomitant]
     Active Substance: ZOLPIDEM TARTRATE
  2. VICTOZA [Concomitant]
     Active Substance: LIRAGLUTIDE
  3. METFORMIN [Concomitant]
     Active Substance: METFORMIN HYDROCHLORIDE
  4. OMEPRAZOLE. [Concomitant]
     Active Substance: OMEPRAZOLE
  5. LISINOPRIL. [Concomitant]
     Active Substance: LISINOPRIL
  6. DULOXETINE 60 MG [Suspect]
     Active Substance: DULOXETINE
     Indication: DEPRESSION
     Dosage: 1 CAPSULE DAILY ONCE DAILY TAKEN BY MOUTH?DURATION: 1 YEAR, GENERIC
     Route: 048
  7. ACETAMINOPHEN. [Concomitant]
     Active Substance: ACETAMINOPHEN
  8. PSEUDOEPHEDRINE [Concomitant]
     Active Substance: PSEUDOEPHEDRINE
  9. INVOKANA [Concomitant]
     Active Substance: CANAGLIFLOZIN

REACTIONS (8)
  - Lethargy [None]
  - Depression [None]
  - Mood swings [None]
  - Headache [None]
  - Impaired self-care [None]
  - Product substitution issue [None]
  - Crying [None]
  - Anger [None]
